FAERS Safety Report 24436434 (Version 2)
Quarter: 2024Q4

REPORT INFORMATION
  Report Type: Spontaneous
  Country: SK (occurrence: SK)
  Receive Date: 20241015
  Receipt Date: 20241213
  Transmission Date: 20250114
  Serious: Yes (Death, Other)
  Sender: AUROBINDO
  Company Number: SK-JNJFOC-20240977116

PATIENT
  Age: 78 Year
  Sex: Female

DRUGS (4)
  1. MELPHALAN [Suspect]
     Active Substance: MELPHALAN
     Indication: Product used for unknown indication
     Dosage: COMPLETED 11 CYCLES
     Route: 065
     Dates: start: 202304
  2. DARZALEX [Suspect]
     Active Substance: DARATUMUMAB
     Indication: Product used for unknown indication
     Dosage: COMPLETED 11 CYCLES, LAST SUBMISSION - DARZALEX WAS ON JULY 26
     Route: 058
     Dates: start: 202304
  3. PREDNISONE [Suspect]
     Active Substance: PREDNISONE
     Indication: Product used for unknown indication
     Dosage: COMPLETED 11 CYCLES
     Route: 065
     Dates: start: 202304
  4. VELCADE [Suspect]
     Active Substance: BORTEZOMIB
     Indication: Product used for unknown indication
     Dosage: COMPLETED 11 CYCLES
     Route: 065
     Dates: start: 202304

REACTIONS (2)
  - Death [Fatal]
  - Acute erythroid leukaemia [Unknown]

NARRATIVE: CASE EVENT DATE: 20240726
